FAERS Safety Report 5195392-2 (Version None)
Quarter: 2006Q4

REPORT INFORMATION
  Report Type: 
  Country: None (occurrence: None)
  Receive Date: 20061229
  Receipt Date: 20061220
  Transmission Date: 20070319
  Serious: Yes (Other)
  Sender: FDA-Public Use
  Company Number: US-PFIZER INC-2006155470

PATIENT
  Sex: Female
  Weight: 45.8 kg

DRUGS (7)
  1. ZOLOFT [Suspect]
     Indication: ANXIETY
  2. ZOLOFT [Suspect]
     Indication: OBSESSIVE-COMPULSIVE DISORDER
  3. NEURONTIN [Suspect]
     Indication: ANXIETY
  4. XANAX XR [Suspect]
     Indication: ANXIETY
     Dates: start: 20060801, end: 20060801
  5. XANAX [Suspect]
     Indication: ANXIETY
     Dosage: TEXT:UNKNOWN
     Dates: start: 20061101, end: 20061101
  6. GEODON [Concomitant]
  7. CLONIDINE [Concomitant]

REACTIONS (7)
  - ANXIETY [None]
  - ARTHRALGIA [None]
  - ARTHRITIS [None]
  - DECREASED APPETITE [None]
  - DRUG INEFFECTIVE [None]
  - JOINT STIFFNESS [None]
  - WEIGHT DECREASED [None]
